FAERS Safety Report 8777632 (Version 2)
Quarter: 2012Q4

REPORT INFORMATION
  Report Type: 
  Country: US (occurrence: US)
  Receive Date: 20120911
  Receipt Date: 20121026
  Transmission Date: 20130627
  Serious: Yes (Hospitalization, Other)
  Sender: FDA-Public Use
  Company Number: PHEH2012US017437

PATIENT
  Age: 41 Year
  Sex: Female
  Weight: 86.17 kg

DRUGS (34)
  1. GILENYA [Suspect]
     Dosage: 0.5 mg, daily
     Route: 048
  2. LEXAPRO [Concomitant]
     Dosage: 5 mg, UNK
  3. IMITREX [Concomitant]
     Dosage: 25 mg, UNK
  4. TOPAMAX [Concomitant]
     Dosage: 25 mg, UNK
  5. OLOPATADINE HYDROCHLORIDE [Concomitant]
     Dosage: 0.2 %, UNK
  6. MIRALAX [Concomitant]
  7. FLOMAX [Concomitant]
     Dosage: 0.4 mg, UNK
  8. BACLOFEN [Concomitant]
     Dosage: 10 mg, UNK
  9. GABAPENTIN [Concomitant]
     Dosage: 100 mg, UNK
  10. VOLTAREN [Concomitant]
     Dosage: 25 mg, UNK
  11. ATIVAN [Concomitant]
     Dosage: 0.5 mg, UNK
  12. ZOFRAN [Concomitant]
     Dosage: 4 mg, UNK
  13. VITAMIN D [Concomitant]
     Dosage: 400 U, UNK
  14. PROCTOFOAM [Concomitant]
     Dosage: 1 %, UNK
  15. FAMPRIDINE [Concomitant]
     Dosage: 10 mg, UNK
  16. MULTIVITAMIN [Concomitant]
  17. BIOTIN [Concomitant]
     Dosage: 5 mg, UNK
     Route: 048
  18. FLONASE [Concomitant]
     Dosage: 0.05 %, UNK
  19. PRILOSEC [Concomitant]
     Dosage: 20 mg, UNK
     Route: 048
  20. NIZORAL [Concomitant]
  21. VAGIFEM [Concomitant]
     Dosage: 25 ug, QD
  22. CLEOCIN [Concomitant]
  23. PRINIVIL [Concomitant]
     Dosage: 10 mg, UNK
     Route: 048
  24. EPIDUO [Concomitant]
  25. VITAMIN D2 [Concomitant]
     Dosage: 50000 U, UNK
     Route: 048
  26. LIDEX [Concomitant]
  27. ASPIRIN [Concomitant]
     Dosage: 81 mg, UNK
     Route: 048
  28. LIORESAL [Concomitant]
     Dosage: 10 mg, UNK
     Route: 048
  29. EPIDERM [Concomitant]
     Route: 048
  30. BENEFIBER [Concomitant]
     Route: 048
  31. KENALOG [Concomitant]
  32. VITAMIN B COMPLEX [Concomitant]
     Route: 048
  33. OLOPATADINE [Concomitant]
     Dosage: 7.5 mg, QD
     Route: 048
  34. TRIDESILON [Concomitant]

REACTIONS (9)
  - Musculoskeletal pain [Unknown]
  - Fall [Unknown]
  - Oedema peripheral [Unknown]
  - Deep vein thrombosis [Recovered/Resolved]
  - Blood pressure increased [Unknown]
  - Neutrophil count increased [Unknown]
  - Lymphocyte count decreased [Unknown]
  - Haemorrhoids [Unknown]
  - Red cell distribution width increased [Unknown]
